FAERS Safety Report 5025833-2 (Version None)
Quarter: 2006Q2

REPORT INFORMATION
  Report Type: 
  Country: None (occurrence: None)
  Receive Date: 20060614
  Receipt Date: 20060612
  Transmission Date: 20061013
  Serious: Yes (Death, Hospitalization)
  Sender: FDA-Public Use
  Company Number: HU-SANOFI-SYNTHELABO-F01200601423

PATIENT
  Sex: Female

DRUGS (8)
  1. NITROMINT [Concomitant]
     Dosage: UNK
  2. BETALOC ZOK [Concomitant]
     Dosage: UNK
  3. L-THYROXINE [Concomitant]
     Dosage: UNK
  4. GLUCOBENE [Concomitant]
     Dosage: UNK
  5. AVASTIN [Suspect]
     Indication: COLORECTAL CANCER
     Route: 042
     Dates: start: 20060113, end: 20060407
  6. CAPECITABINE [Suspect]
     Indication: COLORECTAL CANCER
     Dosage: --- MG FOR 2 WEEKS, Q3W
     Route: 048
     Dates: start: 20060113
  7. OXALIPLATIN [Suspect]
     Indication: COLORECTAL CANCER
     Route: 042
     Dates: start: 20060113, end: 20060407
  8. GLUCOBAY [Concomitant]
     Dosage: UNK

REACTIONS (20)
  - ABDOMINAL PAIN UPPER [None]
  - ATRIAL FIBRILLATION [None]
  - BLOOD GLUCOSE INCREASED [None]
  - BLOOD PRESSURE INCREASED [None]
  - CARDIOPULMONARY FAILURE [None]
  - DEHYDRATION [None]
  - DYSPNOEA [None]
  - EMPHYSEMA [None]
  - EROSIVE OESOPHAGITIS [None]
  - HEPATIC FIBROSIS [None]
  - HEPATIC STEATOSIS [None]
  - HYPOTENSION [None]
  - LEUKOPENIA [None]
  - OVARIAN CYST [None]
  - PULMONARY OEDEMA [None]
  - RENAL DISORDER [None]
  - SCAR [None]
  - SUDDEN DEATH [None]
  - TACHYARRHYTHMIA [None]
  - VOMITING [None]
